FAERS Safety Report 24180347 (Version 4)
Quarter: 2024Q4

REPORT INFORMATION
  Report Type: Spontaneous
  Country: PL (occurrence: PL)
  Receive Date: 20240806
  Receipt Date: 20241017
  Transmission Date: 20250114
  Serious: Yes (Hospitalization)
  Sender: PFIZER
  Company Number: PL-ROCHE-10000032393

PATIENT
  Age: 68 Year
  Sex: Female
  Weight: 69.2 kg

DRUGS (45)
  1. DOXORUBICIN HYDROCHLORIDE [Suspect]
     Active Substance: DOXORUBICIN HYDROCHLORIDE
     Indication: Diffuse large B-cell lymphoma
     Dosage: 88.5 MG, EVERY 3 WEEKS
     Route: 042
     Dates: start: 20240620
  2. DOXORUBICIN HYDROCHLORIDE [Suspect]
     Active Substance: DOXORUBICIN HYDROCHLORIDE
     Dosage: 88.5 MG
     Dates: start: 20240711
  3. POLIVY [Suspect]
     Active Substance: POLATUZUMAB VEDOTIN-PIIQ
     Indication: Diffuse large B-cell lymphoma
     Dosage: 126.36 MG, EVERY 3 WEEKS
     Route: 042
     Dates: start: 20240620
  4. POLIVY [Suspect]
     Active Substance: POLATUZUMAB VEDOTIN-PIIQ
     Dosage: 126.36 MG
     Dates: start: 20240711
  5. CYCLOPHOSPHAMIDE [Suspect]
     Active Substance: CYCLOPHOSPHAMIDE
     Indication: Diffuse large B-cell lymphoma
     Dosage: 1327.5 MG, EVERY 3 WEEKS
     Route: 042
     Dates: start: 20240620
  6. CYCLOPHOSPHAMIDE [Suspect]
     Active Substance: CYCLOPHOSPHAMIDE
     Dosage: 1327.5 MG
     Dates: start: 20240711
  7. PREDNISONE [Suspect]
     Active Substance: PREDNISONE
     Indication: Diffuse large B-cell lymphoma
     Dosage: 100 MG, EVERY 3 WEEKS
     Route: 048
     Dates: start: 20240620, end: 20240620
  8. PREDNISONE [Suspect]
     Active Substance: PREDNISONE
     Dosage: 100 MG
     Dates: start: 20240715, end: 20240715
  9. MABTHERA [Suspect]
     Active Substance: RITUXIMAB
     Indication: Diffuse large B-cell lymphoma
     Dosage: 663.75 MG, EVERY 3 WEEKS
     Route: 042
     Dates: start: 20240620
  10. MABTHERA [Suspect]
     Active Substance: RITUXIMAB
     Dosage: 663.75 MG
     Dates: start: 20240711
  11. FASTURTEC [Concomitant]
     Active Substance: RASBURICASE
     Indication: Prophylaxis
     Dosage: 1.5 MG, 1X/DAY
     Dates: start: 20240620, end: 20240621
  12. FASTURTEC [Concomitant]
     Active Substance: RASBURICASE
     Dosage: 3 MG, 1X/DAY
     Dates: start: 20240621, end: 20240622
  13. FILGRASTIM [Concomitant]
     Active Substance: FILGRASTIM
     Indication: Prophylaxis
     Dosage: UNK
     Route: 058
     Dates: start: 20240622, end: 20240629
  14. FILGRASTIM [Concomitant]
     Active Substance: FILGRASTIM
     Dosage: UNK
     Route: 058
     Dates: start: 20240718, end: 20240721
  15. OMEPRAZOLE [Concomitant]
     Active Substance: OMEPRAZOLE
     Indication: Prophylaxis
     Dosage: 20 MG, AS NEEDED
     Route: 048
     Dates: start: 20240621
  16. FILGRASTIM [Concomitant]
     Active Substance: FILGRASTIM
     Indication: Prophylaxis
     Dosage: UNK, 1X/DAY
     Route: 058
     Dates: start: 20240712, end: 20240716
  17. ELECTROLYTES NOS [Concomitant]
     Active Substance: ELECTROLYTES NOS
     Indication: Prophylaxis
     Dosage: 500 ML FREQ:.0.33 D
     Dates: start: 20240621, end: 20240622
  18. ONDANSETRON [Concomitant]
     Active Substance: ONDANSETRON
     Indication: Prophylaxis of nausea and vomiting
     Dosage: FREQ:.33 D
  19. MAGNESIUM SULFATE [Concomitant]
     Active Substance: MAGNESIUM SULFATE
     Indication: Prophylaxis
     Dosage: 2 G, 1X/DAY
     Dates: start: 20240718, end: 20240719
  20. CALCIUM CARBONATE [Concomitant]
     Active Substance: CALCIUM CARBONATE
     Indication: Mineral supplementation
     Dosage: FREQ:0.5 D
     Route: 048
     Dates: start: 20240621, end: 20240622
  21. CALCIUM CARBONATE [Concomitant]
     Active Substance: CALCIUM CARBONATE
     Dosage: 1000 MG, 1X/DAY
     Route: 048
     Dates: start: 20240719, end: 20240720
  22. CALCIUM CHLORIDE [Concomitant]
     Active Substance: CALCIUM CHLORIDE
     Indication: Prophylaxis
     Dosage: 10 %, 1X/DAY
     Dates: start: 20240718, end: 20240718
  23. NEBIVOLOL [Concomitant]
     Active Substance: NEBIVOLOL
     Indication: Hypertension
     Dosage: 5 MG, 1X/DAY
     Route: 048
     Dates: start: 2021
  24. ALLOPURINOL [Concomitant]
     Active Substance: ALLOPURINOL
     Indication: Hyperuricaemia
     Dosage: 300 MG, 1X/DAY
     Route: 048
     Dates: start: 20240711, end: 20240719
  25. ALLOPURINOL [Concomitant]
     Active Substance: ALLOPURINOL
     Dosage: FREQ:.0.5 D
     Route: 048
     Dates: start: 20240711, end: 20240719
  26. FUROSEMIDE [Concomitant]
     Active Substance: FUROSEMIDE
     Indication: Prophylaxis
     Dosage: FREQ:.0.5 D
     Dates: start: 20240620, end: 20240622
  27. ESSELIV FORTE [Concomitant]
     Indication: Prophylaxis
     Dosage: FREQ:0.33 D
     Route: 048
     Dates: start: 20240620, end: 20240711
  28. ESSELIV FORTE [Concomitant]
     Indication: Alanine aminotransferase increased
     Dosage: FREQ:0.33 D
     Route: 048
     Dates: start: 20240718, end: 20240720
  29. ACETAMINOPHEN [Concomitant]
     Active Substance: ACETAMINOPHEN
     Dosage: 1000 MG
     Dates: start: 20240620, end: 20240620
  30. ACETAMINOPHEN [Concomitant]
     Active Substance: ACETAMINOPHEN
     Dosage: 1000 MG
     Dates: start: 20240711, end: 20240711
  31. ACETAMINOPHEN [Concomitant]
     Active Substance: ACETAMINOPHEN
     Dosage: 1000 MG
     Dates: start: 20240719, end: 20240719
  32. POTASSIUM CHLORIDE [Concomitant]
     Active Substance: POTASSIUM CHLORIDE
     Dosage: 391 MBQ, NUMBER OF UNITS IN THE INTERVAL: 0.33 DAY
     Dates: start: 20240718
  33. DEXAMETHASONE [Concomitant]
     Active Substance: DEXAMETHASONE
     Dosage: 20 MG, 1X/DAY
     Dates: start: 20240719, end: 20240719
  34. NYSTATIN [Concomitant]
     Active Substance: NYSTATIN
     Dosage: 100000 IU, NUMBER OF UNITS IN THE INTERVAL: 0.33 DAY
     Dates: start: 20240718, end: 20240718
  35. ONDANSETRON HYDROCHLORIDE [Concomitant]
     Active Substance: ONDANSETRON HYDROCHLORIDE
     Indication: Prophylaxis of nausea and vomiting
     Dosage: 8 MG
     Dates: start: 20240620, end: 20240621
  36. PROMETHAZINE [Concomitant]
     Active Substance: PROMETHAZINE HYDROCHLORIDE
     Dosage: 25 MG
     Dates: start: 20240620, end: 20240620
  37. PROMETHAZINE [Concomitant]
     Active Substance: PROMETHAZINE HYDROCHLORIDE
     Dosage: 25 MG
     Dates: start: 20240711, end: 20240711
  38. PROMETHAZINE [Concomitant]
     Active Substance: PROMETHAZINE HYDROCHLORIDE
     Dosage: 25 MG
     Dates: start: 20240719, end: 20240719
  39. PRONTORAL [Concomitant]
     Dosage: 15 ML, NUMBER OF UNITS IN THE INTERVAL: 0.33 DAY
     Dates: start: 20240718, end: 20240720
  40. BISEPTOL [Concomitant]
     Active Substance: SULFAMETHOXAZOLE\TRIMETHOPRIM
     Dosage: 960 MG, NUMBER OF UNITS IN THE INTERVAL: 0.33 DAY
     Dates: start: 20240719
  41. CHOLECALCIFEROL [Concomitant]
     Active Substance: CHOLECALCIFEROL
     Dosage: 2000 IU, 1X/DAY
     Dates: start: 20240719, end: 20240720
  42. ACYCLOVIR [Concomitant]
     Active Substance: ACYCLOVIR
     Dosage: 400 MG
     Dates: start: 20240718
  43. POTASSIUM CHLORIDE [Concomitant]
     Active Substance: POTASSIUM CHLORIDE
     Dosage: 40 OTHER
     Dates: start: 20240718, end: 20240718
  44. POTASSIUM CHLORIDE [Concomitant]
     Active Substance: POTASSIUM CHLORIDE
     Dosage: 20 OTHER
     Dates: start: 20240719, end: 20240719
  45. ALLOPURINOL [Concomitant]
     Active Substance: ALLOPURINOL
     Dosage: 100 MG, 1X/DAY
     Dates: start: 20240719

REACTIONS (1)
  - Anaemia [Recovered/Resolved]

NARRATIVE: CASE EVENT DATE: 20240718
